FAERS Safety Report 7641324-4 (Version None)
Quarter: 2011Q3

REPORT INFORMATION
  Report Type: 
  Country: None (occurrence: None)
  Receive Date: 20110728
  Receipt Date: 20110629
  Transmission Date: 20111222
  Serious: No
  Sender: FDA-Public Use
  Company Number: US-BAYER-2011-058763

PATIENT
  Age: 85 Year
  Sex: Female
  Weight: 59 kg

DRUGS (12)
  1. ATENOLOL [Concomitant]
  2. VITAMIN D [Concomitant]
  3. FOSAMAX [Concomitant]
  4. CADUET [Concomitant]
  5. DIOVAN [Concomitant]
  6. FOLIC ACID [Concomitant]
  7. ACCUPRIL [Concomitant]
  8. PRILOSEC [Concomitant]
  9. ALEVE (CAPLET) [Suspect]
     Indication: ARTHRALGIA
  10. ASPIRIN [Concomitant]
  11. METHOTREXATE [Concomitant]
     Dosage: UNK UNK, OW
  12. ALEVE (CAPLET) [Suspect]
     Indication: BACK PAIN
     Dosage: 2 DF, QD
     Route: 048
     Dates: start: 20110628, end: 20110629

REACTIONS (3)
  - NAUSEA [None]
  - NO ADVERSE EVENT [None]
  - VOMITING [None]
